FAERS Safety Report 6412899-8 (Version None)
Quarter: 2009Q4

REPORT INFORMATION
  Report Type: 
  Country: None (occurrence: None)
  Receive Date: 20091023
  Receipt Date: 20091013
  Transmission Date: 20100525
  Serious: No
  Sender: FDA-Public Use
  Company Number: SE-PFIZER INC-2009276606

PATIENT
  Age: 39 Year

DRUGS (2)
  1. CHAMPIX [Suspect]
     Indication: SMOKING CESSATION THERAPY
     Dosage: 1 MG, 2X/DAY
     Dates: start: 20090721, end: 20090910
  2. CHAMPIX [Suspect]
     Indication: PREMEDICATION

REACTIONS (3)
  - ABDOMINAL PAIN UPPER [None]
  - COLD SWEAT [None]
  - PAIN [None]
